FAERS Safety Report 6145406-8 (Version None)
Quarter: 2009Q2

REPORT INFORMATION
  Report Type: 
  Country: None (occurrence: None)
  Receive Date: 20090402
  Receipt Date: 20090323
  Transmission Date: 20091009
  Serious: No
  Sender: FDA-Public Use
  Company Number: 2009S1005266

PATIENT
  Age: 16 Year
  Sex: Male
  Weight: 68.0396 kg

DRUGS (3)
  1. AMNESTEEM [Suspect]
     Indication: ACNE
     Dosage: 20 MG; DAILY; ORAL
     Route: 048
     Dates: start: 20090107, end: 20090109
  2. AMNESTEEM [Suspect]
     Indication: ACNE
     Dosage: 20 MG; DAILY; ORAL
     Route: 048
     Dates: start: 20090112, end: 20090120
  3. MINOCYCLINE HCL [Suspect]
     Indication: ACNE
     Dates: end: 20090105

REACTIONS (8)
  - ALOPECIA [None]
  - AURICULAR SWELLING [None]
  - CHEST DISCOMFORT [None]
  - DRUG INTERACTION [None]
  - EPISTAXIS [None]
  - GASTROINTESTINAL DISORDER [None]
  - PRURITUS [None]
  - RASH [None]
